FAERS Safety Report 6784077-4 (Version None)
Quarter: 2010Q2

REPORT INFORMATION
  Report Type: 
  Country: None (occurrence: None)
  Receive Date: 20100622
  Receipt Date: 20100617
  Transmission Date: 20101027
  Serious: Yes (Death, Hospitalization, Other)
  Sender: FDA-Public Use
  Company Number: JP-SANOFI-AVENTIS-2010SA030785

PATIENT
  Age: 68 Year
  Sex: Male

DRUGS (20)
  1. ELPLAT [Suspect]
     Indication: LARGE INTESTINE CARCINOMA
     Route: 041
     Dates: start: 20100224, end: 20100224
  2. ELPLAT [Suspect]
     Route: 041
     Dates: start: 20100416, end: 20100416
  3. BEVACIZUMAB [Suspect]
     Indication: LARGE INTESTINE CARCINOMA
     Route: 041
  4. BEVACIZUMAB [Suspect]
     Route: 041
     Dates: start: 20100416, end: 20100416
  5. FLUOROURACIL [Concomitant]
     Indication: LARGE INTESTINE CARCINOMA
     Route: 040
     Dates: start: 20100224, end: 20100224
  6. FLUOROURACIL [Concomitant]
     Route: 040
     Dates: start: 20100416, end: 20100416
  7. FLUOROURACIL [Concomitant]
     Route: 041
     Dates: start: 20100224
  8. FLUOROURACIL [Concomitant]
     Route: 041
     Dates: start: 20100401
  9. CALCIUM LEVOFOLINATE [Concomitant]
     Route: 042
     Dates: start: 20100224, end: 20100224
  10. CALCIUM LEVOFOLINATE [Concomitant]
     Route: 042
     Dates: start: 20100416, end: 20100416
  11. GRANISETRON [Concomitant]
     Dates: start: 20100224, end: 20100416
  12. DEXAMETHASONE ACETATE [Concomitant]
     Dates: start: 20100224, end: 20100416
  13. APIDRA [Concomitant]
  14. MAGNESIUM OXIDE [Concomitant]
  15. ALLEGRA [Concomitant]
  16. LIPITOR [Concomitant]
  17. ARTIST [Concomitant]
  18. MUCOSTA [Concomitant]
  19. ATARAX [Concomitant]
  20. GOSHAJINKIGAN [Concomitant]

REACTIONS (16)
  - ANTIBIOTIC RESISTANT STAPHYLOCOCCUS TEST POSITIVE [None]
  - DISSEMINATED INTRAVASCULAR COAGULATION [None]
  - DYSLALIA [None]
  - EPISTAXIS [None]
  - FACE OEDEMA [None]
  - HYPOAESTHESIA [None]
  - LARYNGEAL OEDEMA [None]
  - MULTI-ORGAN FAILURE [None]
  - NEUTROPHIL COUNT DECREASED [None]
  - OEDEMA [None]
  - PALATAL DISORDER [None]
  - PHARYNGITIS [None]
  - PHOTOSENSITIVITY REACTION [None]
  - PLATELET COUNT DECREASED [None]
  - RENAL FAILURE [None]
  - THROAT IRRITATION [None]
